FAERS Safety Report 20374487 (Version 1)
Quarter: 2022Q1

REPORT INFORMATION
  Report Type: Spontaneous
  Country: BE (occurrence: None)
  Receive Date: 20220125
  Receipt Date: 20220125
  Transmission Date: 20220423
  Serious: Yes (Hospitalization, Disabling)
  Sender: FDA-Public Use
  Company Number: 2022A022966

PATIENT
  Age: 77 Year
  Sex: Female
  Weight: 63 kg

DRUGS (24)
  1. TAGRISSO [Suspect]
     Active Substance: OSIMERTINIB
     Indication: EGFR gene mutation
     Route: 048
     Dates: start: 20211020
  2. TAGRISSO [Suspect]
     Active Substance: OSIMERTINIB
     Indication: EGFR gene mutation
     Route: 048
     Dates: start: 20211220
  3. BISOPROLOL [Concomitant]
     Active Substance: BISOPROLOL
     Dosage: ONE TABLET IN THE MORNING
     Route: 048
     Dates: start: 20220109
  4. BROMAZEPAM EG [Concomitant]
     Dosage: ? TABLET AT NIGHT
     Route: 048
     Dates: start: 20220109
  5. ACETAMINOPHEN [Concomitant]
     Active Substance: ACETAMINOPHEN
     Dosage: INTERVAL MINIMUM 1HOUR, 4 TABLETS PER 24 HOUR
     Route: 048
     Dates: start: 20220109
  6. ENTEROL BICODEX BENELUX [Concomitant]
     Dosage: 1 IN THE MORNING
     Route: 048
     Dates: start: 20220114
  7. IMMODIUM INSTANTANEOUS [Concomitant]
     Dosage: 1 TABLET, MINIMAL INTERVAL 1HOUR, MAXIMUM 8 TABLETS PER 24 HOUR
     Route: 048
     Dates: start: 20220113
  8. LEVOTHYROXINE [Concomitant]
     Active Substance: LEVOTHYROXINE
     Dosage: 1 TABLET IN THE MORNING EVERY 2 DAYS
     Route: 048
     Dates: start: 20220110
  9. LEVOTHYROXINE [Concomitant]
     Active Substance: LEVOTHYROXINE
     Dosage: 1 TABLET IN THE MORNING EVERY 2 DAYS
     Route: 048
     Dates: start: 20220109
  10. ALIZAPRIDE HYDROCHLORIDE [Concomitant]
     Active Substance: ALIZAPRIDE HYDROCHLORIDE
     Dosage: 1 TABLET IN THE EVENING
     Route: 048
     Dates: start: 20220109
  11. METFORMIN HYDROCHLORIDE [Concomitant]
     Active Substance: METFORMIN HYDROCHLORIDE
     Route: 048
     Dates: start: 20220109
  12. PANTOMED [Concomitant]
     Dosage: ONE TABLET IN THE MORNING
     Route: 048
     Dates: start: 20220109
  13. RELAXINE [Concomitant]
     Dosage: 1 DRAGEE, INTERVAL MIN: 1 HOUR, MAX 2 DRAGEES PER 24 HOURS
     Route: 048
     Dates: start: 20220109
  14. REMERGON [Concomitant]
     Active Substance: MIRTAZAPINE
     Dosage: 1 TABLET AT NIGHT
     Route: 048
     Dates: start: 20220114
  15. SIMVASTATINE TEVA [Concomitant]
     Dosage: ONE TABLET IN THE EVENING
     Route: 048
     Dates: start: 20220109
  16. TAGRISSO [Concomitant]
     Active Substance: OSIMERTINIB
     Dosage: NIGHT ? TABLET
     Route: 048
     Dates: start: 20220111
  17. TRAZODONE HYDROCHLORIDE [Concomitant]
     Active Substance: TRAZODONE HYDROCHLORIDE
     Dosage: ? TABLET , INTERVAL MIN: 1 HOUR, MAX 2 TABLETS PER 24 HOURS
     Route: 048
     Dates: start: 20220109
  18. LERCANIDIPINE HYDROCHLORIDE [Concomitant]
     Active Substance: LERCANIDIPINE HYDROCHLORIDE
     Dosage: 1 TABLET, INTERVAL MIN: 1HOUR, MAX 2 TABLETS PER 24 H
     Route: 048
     Dates: start: 20220109
  19. ACTRAPID [Concomitant]
     Active Substance: INSULIN HUMAN
     Dosage: 3 ML 100 U/ML
     Route: 058
     Dates: start: 20220109
  20. SODIUM BICARBONATE MOUTHWASH [Concomitant]
     Dosage: 3 TIMES A DAY
     Route: 049
     Dates: start: 20220110
  21. AMOXICILLIN\CLAVULANATE POTASSIUM [Concomitant]
     Active Substance: AMOXICILLIN\CLAVULANATE POTASSIUM
     Dosage: 1GR/200MG,1VIAL/30 MIN 4TIMES PER DAY 50 ML
     Route: 042
     Dates: start: 20220110
  22. SODIUM CHLORIDE [Concomitant]
     Active Substance: SODIUM CHLORIDE
     Dosage: 250 ML/24H ONE SHOT
     Route: 042
     Dates: start: 20220116, end: 20220116
  23. SODIUM CHLORIDE [Concomitant]
     Active Substance: SODIUM CHLORIDE
     Dosage: 250ML/24H CONTINUOUSLY, 2 VIALS
     Route: 042
     Dates: start: 20220117
  24. MAGNESIUM SULPHATE STEROP [Concomitant]
     Dosage: 10 ML 1 GR
     Route: 065

REACTIONS (3)
  - Dry mouth [Unknown]
  - Decreased appetite [Unknown]
  - Diarrhoea [Unknown]
